FAERS Safety Report 23300045 (Version 1)
Quarter: 2023Q4

REPORT INFORMATION
  Report Type: Report from Study
  Country: CA (occurrence: CA)
  Receive Date: 20231215
  Receipt Date: 20231215
  Transmission Date: 20240110
  Serious: Yes (Life-Threatening, Hospitalization)
  Sender: FDA-Public Use
  Company Number: CA-ABBVIE-5533384

PATIENT
  Age: 54 Year
  Sex: Female
  Weight: 83.9 kg

DRUGS (11)
  1. UPADACITINIB [Suspect]
     Active Substance: UPADACITINIB
     Indication: Dermatitis atopic
     Route: 048
     Dates: start: 20220419, end: 20230911
  2. UPADACITINIB [Suspect]
     Active Substance: UPADACITINIB
     Indication: Dermatitis atopic
     Dosage: END DATE 2023
     Route: 048
     Dates: start: 20230925
  3. METHOTREXATE [Concomitant]
     Active Substance: METHOTREXATE
     Indication: Spondylitis
     Route: 048
     Dates: start: 2020
  4. SULFASALAZINE [Concomitant]
     Active Substance: SULFASALAZINE
     Indication: Spondylitis
     Route: 048
     Dates: start: 2021
  5. TEVA BETAHISTINE [Concomitant]
     Indication: Vertigo
     Route: 048
     Dates: start: 202105
  6. CYCLOBENZAPRINE [Concomitant]
     Active Substance: CYCLOBENZAPRINE
     Indication: Spondylitis
     Route: 048
     Dates: start: 2016
  7. PANTOPRAZOLE [Concomitant]
     Active Substance: PANTOPRAZOLE
     Indication: Gastrooesophageal reflux disease
     Route: 048
     Dates: start: 202101
  8. PERINDOPRIL/AMLOPIDINE [Concomitant]
     Indication: Hypertension
     Dosage: 10+14 MG
     Route: 048
     Dates: start: 2020
  9. CELECOXIB [Concomitant]
     Active Substance: CELECOXIB
     Indication: Spondylitis
     Dosage: TIME INTERVAL: AS NECESSARY
     Route: 048
     Dates: start: 2016
  10. METFORMIN [Concomitant]
     Active Substance: METFORMIN HYDROCHLORIDE
     Indication: Glucose tolerance impaired
     Route: 048
     Dates: start: 202306
  11. AVENTYL [Concomitant]
     Active Substance: NORTRIPTYLINE HYDROCHLORIDE
     Indication: Depression
     Route: 048
     Dates: start: 202304

REACTIONS (1)
  - Sepsis [Not Recovered/Not Resolved]

NARRATIVE: CASE EVENT DATE: 20231207
